FAERS Safety Report 10761126 (Version 1)
Quarter: 2015Q1

REPORT INFORMATION
  Report Type: Spontaneous
  Country: US (occurrence: None)
  Receive Date: 20150202
  Receipt Date: 20150202
  Transmission Date: 20150721
  Serious: Yes (Other)
  Sender: FDA-Public Use
  Company Number: UNT-2015-00012

PATIENT
  Age: 47 Year
  Sex: Female
  Weight: 129.7 kg

DRUGS (3)
  1. TYVASO [Suspect]
     Active Substance: TREPROSTINIL
     Indication: PULMONARY ARTERIAL HYPERTENSION
     Route: 055
     Dates: start: 20140428, end: 20140716
  2. ADCIRCA [Concomitant]
     Active Substance: TADALAFIL
  3. TRACLEER /01587701/ (BOSENTAN) [Concomitant]

REACTIONS (6)
  - Musculoskeletal pain [None]
  - Peripheral swelling [None]
  - Choking sensation [None]
  - Incorrect dosage administered [None]
  - Drug dose omission [None]
  - Rash macular [None]

NARRATIVE: CASE EVENT DATE: 2014
